FAERS Safety Report 6082035-9 (Version None)
Quarter: 2009Q1

REPORT INFORMATION
  Report Type: 
  Country: None (occurrence: None)
  Receive Date: 20090218
  Receipt Date: 20081210
  Transmission Date: 20090719
  Serious: Yes (Other)
  Sender: FDA-Public Use
  Company Number: US-BRISTOL-MYERS SQUIBB COMPANY-14337224

PATIENT
  Sex: Female

DRUGS (4)
  1. METFORMIN HCL [Suspect]
  2. GLUCOTROL [Suspect]
     Dosage: TAKING 1/4 OF GLIPIZIDE AT NIGHT.
  3. NOVOLOG [Suspect]
     Dosage: TAKEN AT NIGHT
  4. LANTUS [Suspect]

REACTIONS (3)
  - HYPERGLYCAEMIA [None]
  - HYPOGLYCAEMIA [None]
  - WEIGHT INCREASED [None]
